FAERS Safety Report 5939443-3 (Version None)
Quarter: 2008Q4

REPORT INFORMATION
  Report Type: 
  Country: None (occurrence: None)
  Receive Date: 20081103
  Receipt Date: 20081024
  Transmission Date: 20090506
  Serious: Yes (Other)
  Sender: FDA-Public Use
  Company Number: US-BAXTER-2008BH011497

PATIENT

DRUGS (1)
  1. TISSEEL VH/SD KIT LYOPHILIZED [Suspect]
     Indication: HAEMORRHAGE

REACTIONS (2)
  - DEVICE MALFUNCTION [None]
  - FOREIGN BODY TRAUMA [None]
